FAERS Safety Report 24550047 (Version 2)
Quarter: 2024Q4

REPORT INFORMATION
  Report Type: Report from Study
  Country: AR (occurrence: AR)
  Receive Date: 20241025
  Receipt Date: 20241113
  Transmission Date: 20250114
  Serious: Yes (Other)
  Sender: TAKEDA
  Company Number: AR-TAKEDA-2024TUS107532

PATIENT
  Sex: Male
  Weight: 40 kg

DRUGS (1)
  1. IDURSULFASE [Suspect]
     Active Substance: IDURSULFASE
     Indication: Enzyme supplementation
     Dosage: UNK UNK, 1/WEEK
     Dates: start: 20200715

REACTIONS (1)
  - Inguinal hernia [Recovered/Resolved]
